FAERS Safety Report 10206425 (Version 1)
Quarter: 2014Q2

REPORT INFORMATION
  Report Type: Spontaneous
  Country: US (occurrence: US)
  Receive Date: 20140530
  Receipt Date: 20140530
  Transmission Date: 20141212
  Serious: Yes (Other)
  Sender: FDA-Public Use
  Company Number: US-JNJFOC-20140511252

PATIENT
  Sex: Female

DRUGS (1)
  1. DURAGESIC [Suspect]
     Indication: HERNIA PAIN
     Route: 062

REACTIONS (2)
  - Neuropathy peripheral [Not Recovered/Not Resolved]
  - Drug dose omission [Recovered/Resolved]
